FAERS Safety Report 4366440-4 (Version None)
Quarter: 2004Q2

REPORT INFORMATION
  Report Type: 
  Country: None (occurrence: None)
  Receive Date: 20040527
  Receipt Date: 20040325
  Transmission Date: 20050107
  Serious: No
  Sender: FDA-Public Use
  Company Number: US-BRISTOL-MYERS SQUIBB COMPANY-12542270

PATIENT
  Age: 58 Year
  Sex: Male
  Weight: 78 kg

DRUGS (13)
  1. ERBITUX [Suspect]
     Indication: COLON CANCER
     Route: 042
     Dates: start: 20040316, end: 20040316
  2. BENADRYL [Concomitant]
     Indication: PREMEDICATION
     Route: 042
     Dates: start: 20040316, end: 20040316
  3. DEXAMETHASONE [Concomitant]
     Indication: PREMEDICATION
     Route: 042
     Dates: start: 20040316
  4. ZOFRAN [Concomitant]
     Indication: PREMEDICATION
     Route: 042
     Dates: start: 20040316
  5. LORAZEPAM [Concomitant]
     Indication: PREMEDICATION
     Route: 042
     Dates: start: 20040316, end: 20040316
  6. COUMADIN [Concomitant]
  7. ZYRTEC [Concomitant]
  8. LIPITOR [Concomitant]
  9. DECADRON [Concomitant]
  10. ATIVAN [Concomitant]
  11. PEPCID [Concomitant]
  12. PRILOSEC [Concomitant]
  13. KYTRIL [Concomitant]

REACTIONS (1)
  - DERMATITIS ACNEIFORM [None]
